FAERS Safety Report 17502134 (Version 1)
Quarter: 2020Q1

REPORT INFORMATION
  Report Type: Spontaneous
  Country: US (occurrence: US)
  Receive Date: 20200305
  Receipt Date: 20200305
  Transmission Date: 20200409
  Serious: Yes (Other)
  Sender: FDA-Public Use
  Company Number: US-VERTEX PHARMACEUTICALS-2020-004313

PATIENT
  Sex: Male
  Weight: 82 kg

DRUGS (2)
  1. SYMDEKO [Suspect]
     Active Substance: IVACAFTOR\TEZACAFTOR
     Indication: CYSTIC FIBROSIS
     Dosage: 100MG TEZACAFTOR/150MG IVACAFTOR AND 150MG IVACAFTOR, UNKNOWN FREQUENCY
     Route: 048
  2. CAYSTON [Concomitant]
     Active Substance: AZTREONAM

REACTIONS (2)
  - Hepatic enzyme increased [Unknown]
  - Cataract operation [Unknown]
